FAERS Safety Report 18573625 (Version 1)
Quarter: 2020Q4

REPORT INFORMATION
  Report Type: Report from Study
  Country: BR (occurrence: BR)
  Receive Date: 20201203
  Receipt Date: 20201203
  Transmission Date: 20210114
  Serious: Yes (Hospitalization, Other)
  Sender: FDA-Public Use
  Company Number: NVSC2020BR320168

PATIENT
  Sex: Female

DRUGS (1)
  1. COSENTYX [Suspect]
     Active Substance: SECUKINUMAB
     Indication: PSORIASIS
     Dosage: 300 MG, QMO (2 PENS)
     Route: 065
     Dates: start: 20200518

REACTIONS (6)
  - Product availability issue [Unknown]
  - Bladder cancer [Unknown]
  - Haemorrhage [Not Recovered/Not Resolved]
  - Pain [Unknown]
  - Immunodeficiency [Unknown]
  - Product dose omission issue [Unknown]
